FAERS Safety Report 15967658 (Version 1)
Quarter: 2019Q1

REPORT INFORMATION
  Report Type: Spontaneous
  Country: US (occurrence: US)
  Receive Date: 20190124
  Receipt Date: 20190124
  Transmission Date: 20190418
  Serious: No
  Sender: FDA-Public Use
  Company Number: None

PATIENT
  Age: 63 Year
  Sex: Female
  Weight: 68.04 kg

DRUGS (1)
  1. CIPROFLOXACIN 500MG TABLETS [Suspect]
     Active Substance: CIPROFLOXACIN
     Indication: URINARY TRACT INFECTION
     Dosage: ?          QUANTITY:500 MG MILLIGRAM(S);?
     Route: 048
     Dates: start: 20180403, end: 20180403

REACTIONS (4)
  - Hypoaesthesia [None]
  - Muscle spasms [None]
  - Seizure [None]
  - Pyrexia [None]

NARRATIVE: CASE EVENT DATE: 20180403
